FAERS Safety Report 5044664-0 (Version None)
Quarter: 2006Q3

REPORT INFORMATION
  Report Type: 
  Country: None (occurrence: None)
  Receive Date: 20060706
  Receipt Date: 20060519
  Transmission Date: 20061208
  Serious: Yes (Other)
  Sender: FDA-Public Use
  Company Number: JP-ABBOTT-06P-087-0334197-00

PATIENT
  Sex: Female
  Weight: 50.5 kg

DRUGS (3)
  1. KLARICID TABLETS [Suspect]
     Indication: MYCOPLASMA INFECTION
     Route: 048
     Dates: start: 20060508, end: 20060519
  2. KLARICID TABLETS [Suspect]
  3. ORCIPRENALINE SULFATE [Concomitant]
     Indication: BRONCHITIS
     Route: 048
     Dates: start: 20060508, end: 20060519

REACTIONS (2)
  - ELECTROENCEPHALOGRAM ABNORMAL [None]
  - LOSS OF CONSCIOUSNESS [None]
